FAERS Safety Report 10452814 (Version 1)
Quarter: 2014Q3

REPORT INFORMATION
  Report Type: Spontaneous
  Country: US (occurrence: None)
  Receive Date: 20140912
  Receipt Date: 20140912
  Transmission Date: 20150326
  Serious: Yes (Hospitalization)
  Sender: FDA-Public Use
  Company Number: None

PATIENT
  Age: 69 Year
  Sex: Male
  Weight: 81.8 kg

DRUGS (2)
  1. DALTEPARIN [Suspect]
     Active Substance: DALTEPARIN
     Indication: DEEP VEIN THROMBOSIS
     Dosage: 15000 UNITS  EVERY DAY  SQ
     Route: 058
     Dates: start: 20140709, end: 20140710
  2. HEPARIN [Suspect]
     Active Substance: HEPARIN SODIUM
     Dosage: 25000 UNITS  OTHER  IV
     Route: 042
     Dates: start: 20140628, end: 20140709

REACTIONS (1)
  - Thrombocytopenia [None]

NARRATIVE: CASE EVENT DATE: 20140710
